FAERS Safety Report 8122886-X (Version None)
Quarter: 2012Q1

REPORT INFORMATION
  Report Type: 
  Country: None (occurrence: None)
  Receive Date: 20120208
  Receipt Date: 20120202
  Transmission Date: 20120608
  Serious: Yes (Death)
  Sender: FDA-Public Use
  Company Number: US-PFIZER INC-2012029489

PATIENT
  Sex: Female
  Weight: 53.1 kg

DRUGS (4)
  1. CLONIDINE [Concomitant]
     Dosage: UNK
  2. ZOCOR [Concomitant]
     Dosage: UNK
  3. OXYCODONE [Concomitant]
     Dosage: UNK
  4. AROMASIN [Suspect]
     Indication: BREAST CANCER
     Dosage: UNK, 1X/DAY
     Route: 048
     Dates: start: 20110601

REACTIONS (1)
  - DEATH [None]
